FAERS Safety Report 9800393 (Version 2)
Quarter: 2014Q1

REPORT INFORMATION
  Report Type: Spontaneous
  Country: GB (occurrence: GB)
  Receive Date: 20140107
  Receipt Date: 20140314
  Transmission Date: 20141002
  Serious: Yes (Death)
  Sender: FDA-Public Use
  Company Number: GB-ROCHE-1329597

PATIENT
  Age: 69 Year
  Sex: Female

DRUGS (1)
  1. ACTILYSE [Suspect]
     Indication: ISCHAEMIC STROKE
     Route: 042

REACTIONS (3)
  - Cerebral haemorrhage [Fatal]
  - Intraventricular haemorrhage [Fatal]
  - Hydrocephalus [Fatal]
